FAERS Safety Report 10615181 (Version 1)
Quarter: 2014Q4

REPORT INFORMATION
  Report Type: Spontaneous
  Country: DE (occurrence: DE)
  Receive Date: 20141201
  Receipt Date: 20141201
  Transmission Date: 20150529
  Serious: Yes (Death, Other)
  Sender: FDA-Public Use
  Company Number: DE-CIPLA LTD.-2014DE02247

PATIENT

DRUGS (5)
  1. NAB-PACLITAXEL [Suspect]
     Active Substance: PACLITAXEL
     Indication: PANCREATIC CARCINOMA METASTATIC
     Dosage: 125 MG/M2, UNK
  2. MFOLOX-6 [Suspect]
     Active Substance: FLUOROURACIL\LEUCOVORIN CALCIUM\OXALIPLATIN
     Indication: PANCREATIC CARCINOMA METASTATIC
     Dosage: UNK
     Dates: start: 201307
  3. FOLFIRI [Suspect]
     Active Substance: FLUOROURACIL\IRINOTECAN\LEUCOVORIN
     Indication: PANCREATIC CARCINOMA METASTATIC
     Dosage: UNK
     Dates: start: 201303
  4. IRINOTECAN [Suspect]
     Active Substance: IRINOTECAN
     Indication: PANCREATIC CARCINOMA METASTATIC
  5. GEMCITABINE [Suspect]
     Active Substance: GEMCITABINE\GEMCITABINE HYDROCHLORIDE
     Indication: PANCREATIC CARCINOMA METASTATIC
     Dosage: 1000 MG/M2, UNK

REACTIONS (14)
  - Metastases to peritoneum [Unknown]
  - Haematotoxicity [None]
  - Malignant neoplasm progression [None]
  - Anaemia [Unknown]
  - Thrombocytopenia [Unknown]
  - Alopecia [Unknown]
  - Rash [Unknown]
  - Peripheral sensory neuropathy [Unknown]
  - Leukopenia [Unknown]
  - Nail disorder [Unknown]
  - Intestinal obstruction [Unknown]
  - Pancreatic carcinoma metastatic [None]
  - Death [Fatal]
  - Metastases to liver [Unknown]
